FAERS Safety Report 13700000 (Version 2)
Quarter: 2017Q3

REPORT INFORMATION
  Report Type: Spontaneous
  Country: US (occurrence: US)
  Receive Date: 20170629
  Receipt Date: 20170719
  Transmission Date: 20171127
  Serious: Yes (Life-Threatening, Hospitalization)
  Sender: FDA-Public Use
  Company Number: US-GLENMARK PHARMACEUTICALS-2017GMK027979

PATIENT

DRUGS (1)
  1. EZETIMIBE. [Suspect]
     Active Substance: EZETIMIBE
     Indication: PRODUCT USED FOR UNKNOWN INDICATION
     Dosage: UNK
     Route: 065

REACTIONS (11)
  - Internal haemorrhage [Unknown]
  - Blood pressure decreased [Unknown]
  - Mouth haemorrhage [Unknown]
  - Dyspnoea [Unknown]
  - Product substitution issue [Unknown]
  - Blood glucose decreased [Unknown]
  - Rectal haemorrhage [Unknown]
  - Swelling [Unknown]
  - Blood pressure immeasurable [Unknown]
  - Pruritus [Unknown]
  - Urticaria [Unknown]
